FAERS Safety Report 17402455 (Version 1)
Quarter: 2020Q1

REPORT INFORMATION
  Report Type: Spontaneous
  Country: US (occurrence: US)
  Receive Date: 20200211
  Receipt Date: 20200211
  Transmission Date: 20200409
  Serious: Yes (Other)
  Sender: FDA-Public Use
  Company Number: US-SA-2020SA034843

PATIENT

DRUGS (1)
  1. TAXOTERE [Suspect]
     Active Substance: DOCETAXEL
     Dosage: BEGINNING OF JANUARY 2016 THRU TO THE END OF JANUARY 2016
     Route: 042
     Dates: start: 201601, end: 201601

REACTIONS (1)
  - Alopecia [Recovering/Resolving]
